FAERS Safety Report 5148103-0 (Version None)
Quarter: 2006Q4

REPORT INFORMATION
  Report Type: 
  Country: None (occurrence: None)
  Receive Date: 20061106
  Receipt Date: 20061024
  Transmission Date: 20070319
  Serious: Yes (Hospitalization, Other)
  Sender: FDA-Public Use
  Company Number: 2006127150

PATIENT
  Sex: Female
  Weight: 65 kg

DRUGS (4)
  1. ZARONTIN [Suspect]
     Indication: EPILEPSY
     Dosage: ORAL
     Route: 048
     Dates: start: 19750101
  2. DEPAKENE [Concomitant]
  3. CLONAZEPAM [Concomitant]
  4. LAMOTRIGINE [Concomitant]

REACTIONS (6)
  - ARTHROPATHY [None]
  - CONVULSION [None]
  - DRUG DEPENDENCE [None]
  - DRUG INEFFECTIVE [None]
  - FALL [None]
  - OVERWEIGHT [None]
